FAERS Safety Report 14895980 (Version 3)
Quarter: 2024Q1

REPORT INFORMATION
  Report Type: Spontaneous
  Country: ES (occurrence: ES)
  Receive Date: 20180515
  Receipt Date: 20240319
  Transmission Date: 20240410
  Serious: Yes (Hospitalization)
  Sender: FDA-Public Use
  Company Number: ES-AUROBINDO-AUR-APL-2018-025680

PATIENT
  Age: 89 Year
  Sex: Female

DRUGS (8)
  1. CEFUROXIME [Interacting]
     Active Substance: CEFUROXIME
     Indication: Product used for unknown indication
     Dosage: 40 MILLIGRAM, DAILY
     Route: 048
     Dates: start: 20170723, end: 20170729
  2. SINTROM [Interacting]
     Active Substance: ACENOCOUMAROL
     Indication: Product used for unknown indication
     Dosage: SP ()
     Route: 048
     Dates: start: 20151130, end: 20170731
  3. ATENOLOL [Concomitant]
     Active Substance: ATENOLOL
     Indication: Product used for unknown indication
     Dosage: 1/2-0-1/2
     Route: 048
     Dates: start: 20151130
  4. ATORVASTATIN [Concomitant]
     Active Substance: ATORVASTATIN
     Indication: Product used for unknown indication
     Dosage: 10 MILLIGRAM, DAILY
     Route: 048
     Dates: start: 20151130
  5. HUMALOG MIX75/25 [Concomitant]
     Active Substance: INSULIN LISPRO
     Indication: Product used for unknown indication
     Dosage: 12-0-16
     Route: 058
     Dates: start: 20161112
  6. HERBALS\PLANTAGO OVATA SEED [Concomitant]
     Active Substance: HERBALS\PLANTAGO OVATA SEED
     Indication: Product used for unknown indication
     Dosage: 1-0-1 ()
     Route: 048
     Dates: start: 20151130
  7. OMEPRAZOLE [Concomitant]
     Active Substance: OMEPRAZOLE
     Indication: Product used for unknown indication
     Dosage: 20 MILLIGRAM, DAILY
     Route: 048
     Dates: start: 20151130
  8. SERTRALINE HYDROCHLORIDE [Concomitant]
     Active Substance: SERTRALINE HYDROCHLORIDE
     Indication: Product used for unknown indication
     Dosage: 50 MILLIGRAM, DAILY
     Route: 048
     Dates: start: 20160625

REACTIONS (3)
  - Anaemia [Not Recovered/Not Resolved]
  - Hypocoagulable state [Not Recovered/Not Resolved]
  - Subcutaneous haematoma [Not Recovered/Not Resolved]

NARRATIVE: CASE EVENT DATE: 20170731
